FAERS Safety Report 9608572 (Version 2)
Quarter: 2013Q4

REPORT INFORMATION
  Report Type: Spontaneous
  Country: JP (occurrence: JP)
  Receive Date: 20131009
  Receipt Date: 20131009
  Transmission Date: 20140711
  Serious: Yes (Other)
  Sender: FDA-Public Use
  Company Number: JP-ELI_LILLY_AND_COMPANY-JP201309006520

PATIENT
  Age: 55 Year
  Sex: Male

DRUGS (2)
  1. CYMBALTA [Suspect]
     Indication: CANCER PAIN
     Dosage: 40 MG, QD
     Route: 048
     Dates: start: 201308
  2. LYRICA [Concomitant]
     Indication: CANCER PAIN
     Dosage: UNK
     Dates: start: 201306

REACTIONS (3)
  - Interstitial lung disease [Unknown]
  - Metastases to lung [Unknown]
  - Off label use [Not Recovered/Not Resolved]
